FAERS Safety Report 11728442 (Version 1)
Quarter: 2015Q4

REPORT INFORMATION
  Report Type: Report from Study
  Country: TR (occurrence: TR)
  Receive Date: 20151112
  Receipt Date: 20151112
  Transmission Date: 20160304
  Serious: Yes (Other)
  Sender: FDA-Public Use
  Company Number: TR-ASTRAZENECA-2015SE37956

PATIENT
  Age: 23929 Day
  Sex: Female
  Weight: 122 kg

DRUGS (6)
  1. DIAMICRON [Concomitant]
     Active Substance: GLICLAZIDE
     Indication: TYPE 2 DIABETES MELLITUS
     Route: 048
  2. BYETTA [Suspect]
     Active Substance: EXENATIDE
     Indication: TYPE 2 DIABETES MELLITUS
     Route: 058
  3. BYETTA [Suspect]
     Active Substance: EXENATIDE
     Indication: TYPE 2 DIABETES MELLITUS
     Route: 058
     Dates: start: 20140416, end: 201505
  4. INSULIN [Concomitant]
     Active Substance: INSULIN NOS
  5. BYETTA [Suspect]
     Active Substance: EXENATIDE
     Indication: TYPE 2 DIABETES MELLITUS
     Route: 058
  6. BYETTA [Suspect]
     Active Substance: EXENATIDE
     Indication: TYPE 2 DIABETES MELLITUS
     Route: 058
     Dates: start: 201505, end: 201510

REACTIONS (4)
  - Paraesthesia [Recovered/Resolved]
  - Weight abnormal [Not Recovered/Not Resolved]
  - Nausea [Recovered/Resolved]
  - Pancreatic disorder [Not Recovered/Not Resolved]

NARRATIVE: CASE EVENT DATE: 20150416
